APPROVED DRUG PRODUCT: ZOLPIDEM TARTRATE
Active Ingredient: ZOLPIDEM TARTRATE
Strength: 12.5MG
Dosage Form/Route: TABLET, EXTENDED RELEASE;ORAL
Application: A078148 | Product #001
Applicant: PH HEALTH LTD
Approved: Dec 3, 2010 | RLD: No | RS: No | Type: DISCN